FAERS Safety Report 12165410 (Version 1)
Quarter: 2016Q1

REPORT INFORMATION
  Report Type: Spontaneous
  Country: IT (occurrence: IT)
  Receive Date: 20160309
  Receipt Date: 20160309
  Transmission Date: 20160526
  Serious: Yes (Death, Hospitalization)
  Sender: FDA-Public Use
  Company Number: IT-SA-2016SA013442

PATIENT
  Age: 87 Year
  Sex: Female

DRUGS (3)
  1. CLEXANE T [Suspect]
     Active Substance: ENOXAPARIN SODIUM
     Indication: ANTICOAGULANT THERAPY
     Dosage: DOSE: 12000 UNITS INTERNATIONAL, IN THOUSANDS, DAILY
     Route: 058
     Dates: start: 20151223, end: 20160107
  2. WARFARIN [Concomitant]
     Active Substance: WARFARIN
     Route: 065
  3. WARFARIN [Concomitant]
     Active Substance: WARFARIN
     Route: 065
     Dates: start: 20160104

REACTIONS (3)
  - Cardiogenic shock [Unknown]
  - Subcutaneous haematoma [Fatal]
  - Acute kidney injury [Unknown]

NARRATIVE: CASE EVENT DATE: 20160108
